FAERS Safety Report 11999485 (Version 1)
Quarter: 2016Q1

REPORT INFORMATION
  Report Type: Spontaneous
  Country: US (occurrence: None)
  Receive Date: 20160203
  Receipt Date: 20160203
  Transmission Date: 20160526
  Serious: Yes (Other)
  Sender: FDA-Public Use
  Company Number: None

PATIENT
  Sex: Female
  Weight: 66.68 kg

DRUGS (2)
  1. RIZATRIPTAN. [Suspect]
     Active Substance: RIZATRIPTAN
     Indication: MIGRAINE
     Dates: start: 2014
  2. SUMATRIPTAN. [Suspect]
     Active Substance: SUMATRIPTAN
     Dates: start: 2015

REACTIONS (4)
  - Nausea [None]
  - Pruritus [None]
  - Rash [None]
  - Drug ineffective [None]
